FAERS Safety Report 20969344 (Version 1)
Quarter: 2022Q2

REPORT INFORMATION
  Report Type: Spontaneous
  Country: US (occurrence: US)
  Receive Date: 20220616
  Receipt Date: 20220616
  Transmission Date: 20220721
  Serious: No
  Sender: FDA-Public Use
  Company Number: US-SK LIFE SCIENCE, INC-SKPVG-2022-000365

PATIENT

DRUGS (4)
  1. XCOPRI [Suspect]
     Active Substance: CENOBAMATE
     Indication: Seizure
     Dosage: UNK
     Route: 048
     Dates: start: 20220301
  2. XCOPRI [Suspect]
     Active Substance: CENOBAMATE
     Dosage: 50 MILLIGRAM, QHS,  (50MG/100MG)
     Route: 048
     Dates: end: 20220508
  3. FYCOMPA [Concomitant]
     Active Substance: PERAMPANEL
     Indication: Product used for unknown indication
     Dosage: UNK
     Route: 065
  4. VIMPAT [Concomitant]
     Active Substance: LACOSAMIDE
     Indication: Product used for unknown indication
     Route: 065

REACTIONS (2)
  - Eosinophilic cellulitis [Recovering/Resolving]
  - Superficial inflammatory dermatosis [Recovering/Resolving]
